FAERS Safety Report 12370846 (Version 1)
Quarter: 2016Q2

REPORT INFORMATION
  Report Type: Spontaneous
  Country: US (occurrence: US)
  Receive Date: 20160516
  Receipt Date: 20160516
  Transmission Date: 20160815
  Serious: No
  Sender: FDA-Public Use
  Company Number: US-APOTEX-2016AP008131

PATIENT
  Sex: Female
  Weight: 61.23 kg

DRUGS (1)
  1. PAXIL [Suspect]
     Active Substance: PAROXETINE HYDROCHLORIDE
     Indication: HOT FLUSH
     Dosage: 7.5 MG, DAILY
     Route: 048
     Dates: end: 2015

REACTIONS (1)
  - Drug ineffective for unapproved indication [Unknown]
